FAERS Safety Report 7561164-4 (Version None)
Quarter: 2011Q2

REPORT INFORMATION
  Report Type: 
  Country: None (occurrence: None)
  Receive Date: 20110621
  Receipt Date: 20110222
  Transmission Date: 20111010
  Serious: No
  Sender: FDA-Public Use
  Company Number: US-ASTRAZENECA-2011SE10103

PATIENT
  Age: 8 Year
  Sex: Male

DRUGS (3)
  1. PULMICORT [Suspect]
     Indication: MULTIPLE ALLERGIES
     Route: 055
  2. PULMICORT [Suspect]
     Indication: NASAL CONGESTION
     Route: 055
  3. ALBUTEROL SULFATE AUTOHALER [Concomitant]

REACTIONS (2)
  - DRUG INEFFECTIVE [None]
  - NASAL CONGESTION [None]
